FAERS Safety Report 9180297 (Version 1)
Quarter: 2013Q1

REPORT INFORMATION
  Report Type: Spontaneous
  Country: US (occurrence: US)
  Receive Date: 20130322
  Receipt Date: 20130322
  Transmission Date: 20140127
  Serious: No
  Sender: FDA-Public Use
  Company Number: US-009507513-1303USA008107

PATIENT
  Age: 68 Year
  Sex: Female

DRUGS (5)
  1. JANUVIA [Suspect]
     Indication: TYPE 2 DIABETES MELLITUS
     Dosage: 50 MG, QD
     Route: 048
  2. METFORMIN [Concomitant]
  3. GLIMEPIRIDE [Concomitant]
  4. GABAPENTIN [Concomitant]
  5. ASPIRIN [Concomitant]

REACTIONS (4)
  - Asthenia [Recovered/Resolved]
  - Asthenopia [Recovered/Resolved]
  - Insomnia [Recovered/Resolved]
  - Feeling jittery [Recovered/Resolved]
